FAERS Safety Report 4746469-4 (Version None)
Quarter: 2005Q3

REPORT INFORMATION
  Report Type: 
  Country: None (occurrence: None)
  Receive Date: 20050815
  Receipt Date: 20050805
  Transmission Date: 20060218
  Serious: Yes (Other)
  Sender: FDA-Public Use
  Company Number: 2005-06-1769

PATIENT
  Age: 51 Year
  Sex: Male

DRUGS (3)
  1. REBETOL [Suspect]
     Indication: HEPATITIS C
     Dosage: ORAL
     Route: 048
     Dates: start: 20020101, end: 20030101
  2. VIRAFERONPEG [Suspect]
     Indication: HEPATITIS C
     Dosage: SUBCUTANEOUS
     Route: 058
     Dates: start: 20010101, end: 20030101
  3. XATRAL        (ALFUZOSIN) [Concomitant]

REACTIONS (17)
  - CATARACT OPERATION [None]
  - CEREBELLAR SYNDROME [None]
  - CONSTIPATION [None]
  - COORDINATION ABNORMAL [None]
  - DIFFICULTY IN WALKING [None]
  - DISEASE PROGRESSION [None]
  - DYSSTASIA [None]
  - FATIGUE [None]
  - HEADACHE [None]
  - ISCHAEMIA [None]
  - MACULAR DEGENERATION [None]
  - METAMORPHOPSIA [None]
  - NEUROMYELITIS OPTICA [None]
  - OPTIC NERVE DISORDER [None]
  - OPTIC NEURITIS [None]
  - OPTIC NEUROPATHY [None]
  - URINARY RETENTION [None]
